FAERS Safety Report 7433192-0 (Version None)
Quarter: 2011Q2

REPORT INFORMATION
  Report Type: 
  Country: None (occurrence: None)
  Receive Date: 20110422
  Receipt Date: 20110413
  Transmission Date: 20111010
  Serious: No
  Sender: FDA-Public Use
  Company Number: US-B.I. PHARMACEUTICALS,INC./RIDGEFIELD-2011-BP-01282BP

PATIENT
  Sex: Male

DRUGS (6)
  1. SOTALOL [Concomitant]
     Indication: HYPERTENSION
  2. BENAZEPRIL HYDROCHLORIDE [Concomitant]
     Indication: HYPERTENSION
  3. PRADAXA [Suspect]
     Indication: ATRIAL FIBRILLATION
     Dosage: 300 MG
     Route: 048
     Dates: start: 20101101
  4. SPIRONOLACTONE [Suspect]
     Indication: HYPERTENSION
  5. AMLODIPINE [Concomitant]
     Indication: HYPERTENSION
  6. LIPITOR [Concomitant]
     Indication: BLOOD CHOLESTEROL INCREASED

REACTIONS (3)
  - POLLAKIURIA [None]
  - NAIL DISORDER [None]
  - BLOOD POTASSIUM DECREASED [None]
